FAERS Safety Report 8874898 (Version 1)
Quarter: 2012Q4

REPORT INFORMATION
  Report Type: Report from Study
  Country: GB (occurrence: GB)
  Receive Date: 20121030
  Receipt Date: 20121030
  Transmission Date: 20130627
  Serious: Yes (Hospitalization)
  Sender: FDA-Public Use
  Company Number: GB-ROCHE-1150199

PATIENT
  Age: 68 Year
  Sex: Female

DRUGS (1)
  1. RITUXIMAB [Suspect]
     Indication: RHEUMATOID ARTHRITIS
     Route: 050
     Dates: start: 20080430

REACTIONS (4)
  - Gastric ulcer [Unknown]
  - Gastrointestinal haemorrhage [Unknown]
  - Hypokalaemia [Unknown]
  - Urinary tract infection [Unknown]
